FAERS Safety Report 15488653 (Version 2)
Quarter: 2019Q1

REPORT INFORMATION
  Report Type: Spontaneous
  Country: ES (occurrence: ES)
  Receive Date: 20181011
  Receipt Date: 20190131
  Transmission Date: 20190417
  Serious: Yes (Other)
  Sender: FDA-Public Use
  Company Number: ES-PFIZER INC-2018409071

PATIENT
  Age: 69 Year
  Sex: Female

DRUGS (6)
  1. NEUPOGEN [Suspect]
     Active Substance: FILGRASTIM
     Indication: NEUTROPENIA
     Dosage: 3 UG, QD
     Route: 042
     Dates: start: 20180901, end: 20180903
  2. SULFAMETHOXAZOLE AND TRIMETHOPRIM [Suspect]
     Active Substance: SULFAMETHOXAZOLE\TRIMETHOPRIM
     Indication: SEPSIS
     Dosage: 1 DF HOURLY
     Route: 042
     Dates: start: 20180902, end: 20180904
  3. PARACETAMOL [Suspect]
     Active Substance: ACETAMINOPHEN
     Dosage: 1 G, Q1HR
     Route: 042
     Dates: start: 20180902, end: 20180904
  4. PANTOPRAZOLE [Suspect]
     Active Substance: PANTOPRAZOLE
     Dosage: 40 MEQ, QD
     Route: 042
     Dates: start: 20180901, end: 20180903
  5. MEROPENEM. [Suspect]
     Active Substance: MEROPENEM
     Indication: PNEUMONIA
     Dosage: 2 G, Q1HR
     Route: 042
     Dates: start: 20180901, end: 20180904
  6. DEXKETOPROFENO [Suspect]
     Active Substance: DEXKETOPROFEN
     Indication: LUMBAR VERTEBRAL FRACTURE
     Dosage: 50 MG, QD
     Route: 042
     Dates: start: 20180902, end: 20180902

REACTIONS (1)
  - Hepatitis [Recovered/Resolved]

NARRATIVE: CASE EVENT DATE: 20180903
